FAERS Safety Report 8167194-6 (Version None)
Quarter: 2012Q1

REPORT INFORMATION
  Report Type: 
  Country: None (occurrence: None)
  Receive Date: 20120227
  Receipt Date: 20120216
  Transmission Date: 20120608
  Serious: Yes (Other)
  Sender: FDA-Public Use
  Company Number: AU-JNJFOC-20120210781

PATIENT
  Sex: Female
  Weight: 65 kg

DRUGS (4)
  1. LITHIUM CARBONATE [Concomitant]
     Route: 065
  2. LAMOTRIGINE [Concomitant]
     Route: 065
  3. INVEGA [Suspect]
     Indication: BIPOLAR DISORDER
     Route: 048
  4. DIAZEPAM [Concomitant]
     Route: 065

REACTIONS (1)
  - ALOPECIA [None]
